FAERS Safety Report 10406408 (Version 1)
Quarter: 2014Q3

REPORT INFORMATION
  Report Type: Spontaneous
  Country: US (occurrence: None)
  Receive Date: 20140822
  Receipt Date: 20140822
  Transmission Date: 20150326
  Serious: Yes (Other)
  Sender: FDA-Public Use
  Company Number: None

PATIENT
  Age: 19 Month
  Sex: Male

DRUGS (1)
  1. ARTIFICIAL TEARS [Suspect]
     Active Substance: GLYCERIN\HYPROMELLOSES\POLYETHYLENE GLYCOL 400
     Dosage: 2 DROPS X1  OPHT.
     Route: 047
     Dates: start: 20140610

REACTIONS (5)
  - Erythema [None]
  - Respiratory rate increased [None]
  - Swelling face [None]
  - Heart rate increased [None]
  - Respiratory distress [None]

NARRATIVE: CASE EVENT DATE: 20140610
